FAERS Safety Report 8482378-5 (Version None)
Quarter: 2012Q3

REPORT INFORMATION
  Report Type: 
  Country: None (occurrence: None)
  Receive Date: 20120702
  Receipt Date: 20120621
  Transmission Date: 20120928
  Serious: Yes (Other)
  Sender: FDA-Public Use
  Company Number: TR-JNJFOC-20120610634

PATIENT
  Age: 39 Year
  Sex: Female

DRUGS (1)
  1. RISPERDAL CONSTA [Suspect]
     Indication: SCHIZOPHRENIA
     Dosage: DATE OF LAST ADMINISTRATION WAS JUN-2012
     Route: 030
     Dates: start: 20110101

REACTIONS (3)
  - DRUG INEFFECTIVE [None]
  - CHEST DISCOMFORT [None]
  - ANGINA PECTORIS [None]
